FAERS Safety Report 4590947-8 (Version None)
Quarter: 2005Q1

REPORT INFORMATION
  Report Type: 
  Country: None (occurrence: None)
  Receive Date: 20050222
  Receipt Date: 20050222
  Transmission Date: 20050727
  Serious: Yes (Hospitalization, Other)
  Sender: FDA-Public Use
  Company Number: None

PATIENT
  Sex: Female
  Weight: 13.9 kg

DRUGS (6)
  1. GEMTUZUMAB OZOGAMICIN (GMTZ) [Suspect]
     Dosage: GMTZ IV  OVER 2 HRS0.1 MG/KG:BSA{0.6M2 DAY 6
     Route: 042
     Dates: start: 20050201, end: 20050201
  2. GEMTUZUMAB OZOGAMICIN (GMTZ) [Suspect]
     Dosage: GMTZ IV  OVER 2 HRS0.1 MG/KG:BSA{0.6M2 DAY 6
     Route: 042
     Dates: start: 20040924
  3. IT ARA-C [Suspect]
     Dosage: 50MG DAYS 0,2,5,9,12,16
     Route: 037
     Dates: start: 20040924
  4. CYTARABINE [Suspect]
     Dosage: 3.3 MG/KG IV PUSH DAYS 1-10
     Route: 042
     Dates: start: 20040924
  5. DAUNORUBICIN HCL [Suspect]
     Dosage: 1.67 MG/KG IV OVER 6 HRS DAYS 1,2,5
     Route: 042
     Dates: start: 20040924
  6. ETOPOSIDE [Suspect]
     Dosage: 3.3 MG/KG IV OVER 4 HOURS DAYS 1-5
     Route: 042
     Dates: start: 20040924

REACTIONS (11)
  - ASPIRATION TRACHEAL ABNORMAL [None]
  - BACTERIAL INFECTION [None]
  - BRONCHOALVEOLAR LAVAGE ABNORMAL [None]
  - CANDIDIASIS [None]
  - HEPATOMEGALY [None]
  - HYPERTENSION [None]
  - LUNG NEOPLASM [None]
  - SINUSITIS [None]
  - TACHYCARDIA [None]
  - THERAPY NON-RESPONDER [None]
  - TRACHEAL HAEMORRHAGE [None]
